FAERS Safety Report 23463525 (Version 1)
Quarter: 2024Q1

REPORT INFORMATION
  Report Type: Other
  Country: UA (occurrence: None)
  Receive Date: 20240131
  Receipt Date: 20240131
  Transmission Date: 20240409
  Serious: Yes (Death)
  Sender: FDA-Public Use
  Company Number: UA-ROCHE-3480520

PATIENT
  Age: 63 Year
  Sex: Male

DRUGS (1)
  1. AVASTIN [Suspect]
     Active Substance: BEVACIZUMAB
     Indication: Glioblastoma
     Dosage: 100 MG/4 ML, 400 MG/16 ML

REACTIONS (1)
  - Glioblastoma [Fatal]

NARRATIVE: CASE EVENT DATE: 20230831
